FAERS Safety Report 13021927 (Version 1)
Quarter: 2016Q4

REPORT INFORMATION
  Report Type: Spontaneous
  Country: US (occurrence: US)
  Receive Date: 20161213
  Receipt Date: 20161213
  Transmission Date: 20170207
  Serious: Yes (Hospitalization, Other)
  Sender: FDA-Public Use
  Company Number: US-HORIZON-ACT-0287-2016

PATIENT
  Age: 28 Year
  Sex: Male

DRUGS (1)
  1. ACTIMMUNE [Suspect]
     Active Substance: INTERFERON GAMMA-1B
     Indication: CHRONIC GRANULOMATOUS DISEASE
     Dosage: 75 MCG TIW

REACTIONS (7)
  - Sepsis [Unknown]
  - Staphylococcal infection [Unknown]
  - Hyperkalaemia [Unknown]
  - Liver abscess [Unknown]
  - Fungal skin infection [Unknown]
  - Pneumonia fungal [Unknown]
  - Aspergillus infection [Unknown]
